FAERS Safety Report 5285791-2 (Version None)
Quarter: 2007Q1

REPORT INFORMATION
  Report Type: 
  Country: None (occurrence: None)
  Receive Date: 20070116
  Receipt Date: 20060918
  Transmission Date: 20070707
  Serious: Yes (Other)
  Sender: FDA-Public Use
  Company Number: 2006SP003326

PATIENT
  Sex: Male
  Weight: 83.9154 kg

DRUGS (7)
  1. LUNESTA [Suspect]
     Indication: SLEEP APNOEA SYNDROME
     Dosage: SEE IMAGE
     Route: 048
     Dates: start: 20060712, end: 20060801
  2. LUNESTA [Suspect]
     Indication: SLEEP APNOEA SYNDROME
     Dosage: SEE IMAGE
     Route: 048
     Dates: start: 20060801, end: 20060909
  3. COZAAR [Concomitant]
  4. HYDRALAZINE HCL [Concomitant]
  5. ECOTRIN [Concomitant]
  6. ANTACIDA FNA [Concomitant]
  7. PREVACID [Concomitant]

REACTIONS (8)
  - ASTHENIA [None]
  - CHEST PAIN [None]
  - CHOLELITHIASIS [None]
  - DIVERTICULUM [None]
  - HEADACHE [None]
  - HYPONATRAEMIA [None]
  - MALAISE [None]
  - STOMACH DISCOMFORT [None]
